FAERS Safety Report 15168601 (Version 1)
Quarter: 2018Q3

REPORT INFORMATION
  Report Type: Report from Study
  Country: GB (occurrence: GB)
  Receive Date: 20180719
  Receipt Date: 20180719
  Transmission Date: 20181010
  Serious: Yes (Hospitalization)
  Sender: FDA-Public Use
  Company Number: GB-AMGEN-GBRCT2018097225

PATIENT
  Age: 34 Year
  Sex: Male
  Weight: 84 kg

DRUGS (2)
  1. CARFILZOMIB [Suspect]
     Active Substance: CARFILZOMIB
     Indication: T-CELL LYMPHOMA
     Dosage: 89 MG, PER CHEMO REGIM
     Route: 042
     Dates: start: 20180531
  2. ROMIDEPSIN. [Suspect]
     Active Substance: ROMIDEPSIN
     Indication: T-CELL LYMPHOMA
     Dosage: 20 MG, PER CHEMO REGIM
     Route: 042
     Dates: start: 20180531

REACTIONS (2)
  - Infection [Recovered/Resolved]
  - Infestation [Recovered/Resolved]

NARRATIVE: CASE EVENT DATE: 20180701
